FAERS Safety Report 16097193 (Version 1)
Quarter: 2019Q1

REPORT INFORMATION
  Report Type: Spontaneous
  Country: GB (occurrence: GB)
  Receive Date: 20190320
  Receipt Date: 20190320
  Transmission Date: 20190418
  Serious: Yes (Other)
  Sender: FDA-Public Use
  Company Number: GB-MYLANLABS-2019M1024954

PATIENT
  Age: 45 Year
  Sex: Male
  Weight: 110 kg

DRUGS (5)
  1. TOPIRAMATE. [Suspect]
     Active Substance: TOPIRAMATE
     Indication: CLUSTER HEADACHE
     Dosage: 200 MILLIGRAM, QD
     Route: 048
  2. PREGABALIN. [Suspect]
     Active Substance: PREGABALIN
     Indication: CLUSTER HEADACHE
     Dosage: 150 MILLIGRAM, QD
     Route: 048
     Dates: start: 20170901
  3. PREGABALIN. [Suspect]
     Active Substance: PREGABALIN
     Dosage: 250 MILLIGRAM, QD (100MG MORNING AND LUNCH, 50MG AT NIGHT.)
     Route: 048
  4. SUMATRIPTAN SUCCINATE. [Concomitant]
     Active Substance: SUMATRIPTAN SUCCINATE
     Dosage: UNK
  5. COCODAMOL [Concomitant]
     Active Substance: ACETAMINOPHEN\CODEINE PHOSPHATE
     Dosage: UNK

REACTIONS (1)
  - Bradycardia [Not Recovered/Not Resolved]
